FAERS Safety Report 8431814-9 (Version None)
Quarter: 2012Q2

REPORT INFORMATION
  Report Type: 
  Country: None (occurrence: None)
  Receive Date: 20120606
  Receipt Date: 20120521
  Transmission Date: 20120825
  Serious: Yes (Other)
  Sender: FDA-Public Use
  Company Number: 1293755

PATIENT
  Age: 19 Year
  Sex: Female
  Weight: 52.27 kg

DRUGS (2)
  1. LIDOCAINE HCL [Suspect]
     Indication: LOCAL ANAESTHESIA
     Dosage: 15 CC, X1 DOSE,
     Route: 042
     Dates: start: 20120510, end: 20120510
  2. SODIUM BICARBONATE [Suspect]
     Indication: LOCAL ANAESTHESIA
     Dosage: 5 CC, X1 DOSE,
     Route: 042
     Dates: start: 20120510, end: 20120510

REACTIONS (4)
  - SKIN LESION [None]
  - JOINT SWELLING [None]
  - OEDEMA PERIPHERAL [None]
  - BLISTER [None]
